FAERS Safety Report 6384353-3 (Version None)
Quarter: 2009Q3

REPORT INFORMATION
  Report Type: 
  Country: None (occurrence: None)
  Receive Date: 20090929
  Receipt Date: 20090923
  Transmission Date: 20100115
  Serious: Yes (Death, Hospitalization)
  Sender: FDA-Public Use
  Company Number: 2009SP026542

PATIENT
  Sex: Female

DRUGS (2)
  1. TEMODAL [Suspect]
     Indication: DRUG USE FOR UNKNOWN INDICATION
     Dosage: 120 MG;QD;
  2. BACTRIM (CON.) [Concomitant]

REACTIONS (1)
  - PNEUMONITIS [None]
